FAERS Safety Report 11222325 (Version 1)
Quarter: 2015Q2

REPORT INFORMATION
  Report Type: Spontaneous
  Country: JP (occurrence: JP)
  Receive Date: 20150626
  Receipt Date: 20150626
  Transmission Date: 20150821
  Serious: Yes (Death, Hospitalization)
  Sender: FDA-Public Use
  Company Number: JP-BAYER-2014-183992

PATIENT
  Age: 56 Year
  Sex: Female
  Weight: 60 kg

DRUGS (4)
  1. STIVARGA [Suspect]
     Active Substance: REGORAFENIB
     Indication: COLORECTAL CANCER
     Dosage: 160 MG, QD, 3 WEEKS ON, OFF ONE WEEK
     Route: 048
     Dates: start: 20141126, end: 20141208
  2. PARIET [Concomitant]
     Active Substance: RABEPRAZOLE SODIUM
     Indication: PROPHYLAXIS AGAINST GASTROINTESTINAL ULCER
     Dosage: DAILY DOSE 10 MG
     Route: 048
     Dates: start: 20141126, end: 20141208
  3. LOXONIN [Concomitant]
     Active Substance: LOXOPROFEN SODIUM
  4. MUCOSTA [Concomitant]
     Active Substance: REBAMIPIDE

REACTIONS (4)
  - Stevens-Johnson syndrome [Recovered/Resolved]
  - Colon cancer [Fatal]
  - Pyrexia [Recovered/Resolved]
  - Enanthema [Recovered/Resolved]

NARRATIVE: CASE EVENT DATE: 20141205
